FAERS Safety Report 10926467 (Version 5)
Quarter: 2015Q2

REPORT INFORMATION
  Report Type: Spontaneous
  Country: JP (occurrence: None)
  Receive Date: 20150316
  Receipt Date: 20150421
  Transmission Date: 20150821
  Serious: Yes (Death, Hospitalization)
  Sender: FDA-Public Use
  Company Number: 2015FE00802

PATIENT
  Age: 77 Year
  Sex: Male
  Weight: 43 kg

DRUGS (1)
  1. GONAX [Suspect]
     Active Substance: DEGARELIX
     Indication: PROSTATE CANCER
     Dosage: 240 MG, ONCE/SINGLE, SUBCUTANEOUS?
     Route: 058
     Dates: start: 20131003, end: 20131003

REACTIONS (5)
  - Pneumonia [None]
  - Pneumonia aspiration [None]
  - Brain neoplasm [None]
  - Haemorrhagic cerebral infarction [None]
  - Glioma [None]

NARRATIVE: CASE EVENT DATE: 20140220
